FAERS Safety Report 6845506-0 (Version None)
Quarter: 2010Q3

REPORT INFORMATION
  Report Type: 
  Country: None (occurrence: None)
  Receive Date: 20100715
  Receipt Date: 20070821
  Transmission Date: 20110219
  Serious: No
  Sender: FDA-Public Use
  Company Number: US-PFIZER INC-2007071014

PATIENT
  Sex: Female
  Weight: 68.2 kg

DRUGS (4)
  1. CHANTIX [Suspect]
     Indication: SMOKING CESSATION THERAPY
     Dates: start: 20070731
  2. LEXAPRO [Concomitant]
  3. ANTABUSE [Concomitant]
  4. DOXEPIN HCL [Concomitant]

REACTIONS (4)
  - NAUSEA [None]
  - NIGHTMARE [None]
  - SOMNOLENCE [None]
  - VOMITING [None]
